FAERS Safety Report 17278609 (Version 5)
Quarter: 2020Q1

REPORT INFORMATION
  Report Type: Report from Study
  Country: CA (occurrence: CA)
  Receive Date: 20200116
  Receipt Date: 20200306
  Transmission Date: 20200409
  Serious: Yes (Hospitalization)
  Sender: FDA-Public Use
  Company Number: CA-UCBSA-2019045698

PATIENT
  Age: 67 Year
  Sex: Female

DRUGS (5)
  1. DOMPERIDONE [Concomitant]
     Active Substance: DOMPERIDONE
     Indication: PRODUCT USED FOR UNKNOWN INDICATION
     Dosage: UNK
  2. PERCOCET [Concomitant]
     Active Substance: ACETAMINOPHEN\OXYCODONE HYDROCHLORIDE
     Indication: PRODUCT USED FOR UNKNOWN INDICATION
     Dosage: UNK
  3. CERTOLIZUMAB PEGOL [Suspect]
     Active Substance: CERTOLIZUMAB PEGOL
     Indication: RHEUMATOID ARTHRITIS
     Dosage: 200 MILLIGRAM, EV 2 WEEKS(QOW)
     Dates: start: 20160919
  4. FLEXERIL [CEFIXIME] [Concomitant]
     Active Substance: CEFIXIME
     Indication: PRODUCT USED FOR UNKNOWN INDICATION
     Dosage: UNK
  5. PREDNISONE. [Suspect]
     Active Substance: PREDNISONE
     Indication: RHEUMATOID ARTHRITIS
     Dosage: 20 MILLIGRAM, 2X/DAY (BID)
     Route: 048
     Dates: start: 202001, end: 202001

REACTIONS (15)
  - Headache [Unknown]
  - Muscle spasms [Recovered/Resolved]
  - Nausea [Not Recovered/Not Resolved]
  - Clavicle fracture [Unknown]
  - Skin discolouration [Unknown]
  - Cold sweat [Unknown]
  - Oropharyngeal pain [Unknown]
  - Rheumatoid arthritis [Recovered/Resolved]
  - Viral infection [Not Recovered/Not Resolved]
  - Body temperature increased [Unknown]
  - Discoloured vomit [Unknown]
  - Blood pressure increased [Unknown]
  - Myalgia [Unknown]
  - Nasal congestion [Unknown]
  - Contusion [Recovered/Resolved]

NARRATIVE: CASE EVENT DATE: 201912
